FAERS Safety Report 9062971 (Version 1)
Quarter: 2013Q1

REPORT INFORMATION
  Report Type: Report from Study
  Country: US (occurrence: US)
  Receive Date: 20130129
  Receipt Date: 20130129
  Transmission Date: 20140127
  Serious: No
  Sender: FDA-Public Use
  Company Number: US-ABBOTT-12P-163-0945481-00

PATIENT
  Age: 36 None
  Sex: Female
  Weight: 79 kg

DRUGS (1)
  1. HUMIRA 40 MG/ 0.8 ML PRE-FILLED SYRINGE [Suspect]
     Indication: RHEUMATOID ARTHRITIS
     Dates: start: 201112

REACTIONS (4)
  - Cough [Not Recovered/Not Resolved]
  - Fatigue [Not Recovered/Not Resolved]
  - Productive cough [Not Recovered/Not Resolved]
  - Diarrhoea [Recovered/Resolved]
